FAERS Safety Report 8238440-5 (Version None)
Quarter: 2012Q1

REPORT INFORMATION
  Report Type: 
  Country: None (occurrence: None)
  Receive Date: 20120309
  Receipt Date: 20100511
  Transmission Date: 20120608
  Serious: No
  Sender: FDA-Public Use
  Company Number: PHEH2010US01029

PATIENT
  Age: 39 Year
  Sex: Female

DRUGS (6)
  1. EXTAVIA [Suspect]
     Indication: MULTIPLE SCLEROSIS
     Dosage: 0.25 MG, QOD (EVERY OTHER DAY), SUBCUTANEOUS 0.3 MG, SUBCUTANEOUS
     Route: 058
  2. EXTAVIA [Suspect]
     Indication: MULTIPLE SCLEROSIS
     Dosage: 0.25 MG, QOD (EVERY OTHER DAY), SUBCUTANEOUS 0.3 MG, SUBCUTANEOUS
     Route: 058
     Dates: start: 20091222
  3. FLOMAX [Concomitant]
  4. EFFEXOR [Concomitant]
  5. UROQID-ACID (METHENAMINE MANDELATE SODIUM PHOSPHATE MONOBASIC (MONOHYD [Concomitant]
  6. BACLOFEN [Concomitant]

REACTIONS (10)
  - INFLUENZA LIKE ILLNESS [None]
  - INJECTION SITE PAIN [None]
  - WEIGHT DECREASED [None]
  - FEELING HOT [None]
  - RASH PRURITIC [None]
  - INJECTION SITE SWELLING [None]
  - MOTION SICKNESS [None]
  - DECREASED APPETITE [None]
  - NAUSEA [None]
  - MUSCULOSKELETAL STIFFNESS [None]
